FAERS Safety Report 9120949 (Version 2)
Quarter: 2013Q1

REPORT INFORMATION
  Report Type: Spontaneous
  Country: GB (occurrence: IN)
  Receive Date: 20130226
  Receipt Date: 20130315
  Transmission Date: 20140127
  Serious: No
  Sender: FDA-Public Use
  Company Number: GB-ROCHE-1194939

PATIENT
  Sex: Female

DRUGS (1)
  1. ROACCUTANE [Suspect]
     Indication: PRODUCT USED FOR UNKNOWN INDICATION
     Dosage: DAILY FOR 4 WEEKS UPTO 15/DEC/2012
     Route: 065

REACTIONS (1)
  - Pregnancy [Unknown]
